FAERS Safety Report 25995201 (Version 1)
Quarter: 2025Q4

REPORT INFORMATION
  Report Type: Spontaneous
  Country: CA (occurrence: None)
  Receive Date: 20251103
  Receipt Date: 20251103
  Transmission Date: 20260118
  Serious: Yes (Other)
  Sender: FDA-CTU
  Company Number: None

PATIENT
  Age: 31 Year
  Sex: Male
  Weight: 85.5 kg

DRUGS (4)
  1. FLUOXETINE [Suspect]
     Active Substance: FLUOXETINE HYDROCHLORIDE
     Indication: Product use issue
  2. CITALOPRAM [Suspect]
     Active Substance: CITALOPRAM
  3. VENLAFAXINE HYDROCHLORIDE [Suspect]
     Active Substance: VENLAFAXINE HYDROCHLORIDE
  4. QUETIAPINE FUMARATE [Suspect]
     Active Substance: QUETIAPINE FUMARATE

REACTIONS (12)
  - Amnesia [None]
  - Electric shock sensation [None]
  - Tremor [None]
  - Anxiety [None]
  - Persistent genital arousal disorder [None]
  - Genital pain [None]
  - Hallucination [None]
  - Insomnia [None]
  - Panic attack [None]
  - Agitation [None]
  - Disturbance in attention [None]
  - Completed suicide [None]

NARRATIVE: CASE EVENT DATE: 20220401
